FAERS Safety Report 17172893 (Version 1)
Quarter: 2019Q4

REPORT INFORMATION
  Report Type: Spontaneous
  Country: US (occurrence: US)
  Receive Date: 20191218
  Receipt Date: 20191218
  Transmission Date: 20200122
  Serious: No
  Sender: FDA-Public Use
  Company Number: US-BAYER-2019-228401

PATIENT
  Age: 5 Year
  Sex: Female

DRUGS (3)
  1. CLARITIN [Suspect]
     Active Substance: LORATADINE
     Indication: SEASONAL ALLERGY
     Dosage: 5 MG, BID
     Route: 048
     Dates: start: 20191213
  2. CLARITIN [Suspect]
     Active Substance: LORATADINE
     Indication: NASOPHARYNGITIS
  3. CLARITIN [Suspect]
     Active Substance: LORATADINE
     Indication: ECZEMA

REACTIONS (2)
  - Accidental exposure to product by child [Not Recovered/Not Resolved]
  - Failure of child resistant mechanism for pharmaceutical product [Not Recovered/Not Resolved]

NARRATIVE: CASE EVENT DATE: 20191213
